FAERS Safety Report 5696020-X (Version None)
Quarter: 2008Q2

REPORT INFORMATION
  Report Type: 
  Country: None (occurrence: None)
  Receive Date: 20080407
  Receipt Date: 20080328
  Transmission Date: 20081010
  Serious: Yes (Other)
  Sender: FDA-Public Use
  Company Number: US-MERCK-0803USA04995

PATIENT
  Age: 64 Year
  Sex: Male

DRUGS (12)
  1. SINGULAIR [Suspect]
     Indication: ASTHMA
     Route: 048
     Dates: end: 20080328
  2. BRIMONIDINE TARTRATE [Concomitant]
     Route: 047
  3. PREDNISOLONE [Concomitant]
     Route: 047
  4. COSOPT [Concomitant]
     Route: 047
  5. VITAMINS (UNSPECIFIED) [Concomitant]
     Route: 065
  6. NITROGLYCERIN [Concomitant]
     Route: 061
  7. PERCOCET [Concomitant]
     Route: 048
  8. ATROVENT [Concomitant]
     Route: 065
  9. ASPIRIN [Concomitant]
     Route: 065
  10. POTASSIUM (UNSPECIFIED) [Concomitant]
     Route: 065
  11. VERAPAMIL [Concomitant]
     Route: 065
  12. ACYCLOVIR [Concomitant]
     Route: 065

REACTIONS (4)
  - DEPRESSED MOOD [None]
  - MEMORY IMPAIRMENT [None]
  - PAIN IN EXTREMITY [None]
  - SUICIDAL IDEATION [None]
